FAERS Safety Report 23691046 (Version 1)
Quarter: 2024Q2

REPORT INFORMATION
  Report Type: Spontaneous
  Country: US (occurrence: US)
  Receive Date: 20240401
  Receipt Date: 20240401
  Transmission Date: 20240717
  Serious: Yes (Hospitalization)
  Sender: FDA-Public Use
  Company Number: US-SUN PHARMACEUTICAL INDUSTRIES LTD-2024R1-438865

PATIENT

DRUGS (3)
  1. IMATINIB [Suspect]
     Active Substance: IMATINIB
     Indication: Chemotherapy
     Dosage: 340 MILLIGRAM/SQ. METER, DAILY
     Route: 065
  2. SIROLIMUS [Suspect]
     Active Substance: SIROLIMUS
     Indication: Chemotherapy
     Dosage: 1 MILLIGRAM/SQ. METER, DAILY
     Route: 065
  3. SIROLIMUS [Suspect]
     Active Substance: SIROLIMUS
     Dosage: UNK (-0.8 MG/M2 DAILY)
     Route: 065

REACTIONS (3)
  - Therapeutic response decreased [Unknown]
  - Pyrexia [Unknown]
  - Swelling face [Unknown]
